FAERS Safety Report 12103931 (Version 1)
Quarter: 2016Q1

REPORT INFORMATION
  Report Type: Spontaneous
  Country: US (occurrence: US)
  Receive Date: 20160223
  Receipt Date: 20160223
  Transmission Date: 20160526
  Serious: No
  Sender: FDA-Public Use
  Company Number: US-TEVA-604538USA

PATIENT
  Sex: Female

DRUGS (1)
  1. BENAZEPRIL [Suspect]
     Active Substance: BENAZEPRIL HYDROCHLORIDE
     Dosage: 20 MILLIGRAM DAILY;
     Route: 065

REACTIONS (3)
  - Blood pressure systolic increased [Unknown]
  - Drug ineffective [Unknown]
  - Product substitution issue [Unknown]
